FAERS Safety Report 24005761 (Version 6)
Quarter: 2024Q4

REPORT INFORMATION
  Report Type: Spontaneous
  Country: US (occurrence: US)
  Receive Date: 20240624
  Receipt Date: 20241227
  Transmission Date: 20250115
  Serious: No
  Sender: SANOFI AVENTIS
  Company Number: US-SA-2024SA131688

PATIENT
  Age: 51 Year
  Sex: Female
  Weight: 86.18 kg

DRUGS (6)
  1. DUPIXENT [Suspect]
     Active Substance: DUPILUMAB
     Indication: Asthma
     Dosage: 600 MG, 1X
     Route: 058
     Dates: start: 20240503, end: 20240503
  2. DUPIXENT [Suspect]
     Active Substance: DUPILUMAB
     Dosage: 300 MG, QOW
     Route: 058
     Dates: start: 202405, end: 20241030
  3. DUPIXENT [Suspect]
     Active Substance: DUPILUMAB
     Dosage: 300 MG, QOW
     Route: 058
  4. NUCALA [Concomitant]
     Active Substance: MEPOLIZUMAB
  5. PROAIR RESPICLICK [Concomitant]
     Active Substance: ALBUTEROL SULFATE
  6. SYMBICORT [Concomitant]
     Active Substance: BUDESONIDE\FORMOTEROL FUMARATE DIHYDRATE

REACTIONS (13)
  - Tooth infection [Unknown]
  - Upper-airway cough syndrome [Unknown]
  - Bone pain [Unknown]
  - Hypokinesia [Not Recovered/Not Resolved]
  - Cough [Unknown]
  - Arthritis [Unknown]
  - Injection site rash [Unknown]
  - Chest discomfort [Unknown]
  - Therapeutic response shortened [Unknown]
  - Injection site pain [Unknown]
  - Arthralgia [Recovered/Resolved]
  - Musculoskeletal stiffness [Recovering/Resolving]
  - Paraesthesia [Recovering/Resolving]

NARRATIVE: CASE EVENT DATE: 20240101
